FAERS Safety Report 7248020-6 (Version None)
Quarter: 2011Q1

REPORT INFORMATION
  Report Type: 
  Country: None (occurrence: None)
  Receive Date: 20110127
  Receipt Date: 20110124
  Transmission Date: 20110831
  Serious: Yes (Death)
  Sender: FDA-Public Use
  Company Number: US-CEPHALON-US022401

PATIENT
  Age: 52 Year
  Sex: Female

DRUGS (11)
  1. PREGABALIN [Suspect]
     Route: 048
  2. OXYCODONE [Suspect]
     Route: 048
  3. IBUPROFEN [Suspect]
     Route: 048
  4. BUPROPION [Suspect]
     Route: 048
  5. METHOCARBAMOL [Suspect]
     Route: 048
  6. FENTANYL CITRATE (MANUFACTURER UNKNOWN) [Suspect]
     Route: 048
  7. DOXEPIN HCL [Suspect]
     Route: 048
  8. ATORVASTATIN [Suspect]
     Route: 048
  9. TIZANIDINE HYDROCHLORIDE [Suspect]
     Dosage: UNK
     Route: 048
  10. FLUOXETINE [Suspect]
     Route: 048
  11. AMOXICILLIN [Suspect]
     Route: 048

REACTIONS (2)
  - INTENTIONAL OVERDOSE [None]
  - CARDIO-RESPIRATORY ARREST [None]
